FAERS Safety Report 21044049 (Version 1)
Quarter: 2022Q3

REPORT INFORMATION
  Report Type: Spontaneous
  Country: US (occurrence: None)
  Receive Date: 20220702
  Receipt Date: 20220702
  Transmission Date: 20221027
  Serious: Yes (Other)
  Sender: FDA-Public Use
  Company Number: None

PATIENT
  Age: 24 Year
  Sex: Male
  Weight: 61.65 kg

DRUGS (19)
  1. BUPRENORPHINE TRANSDERMAL SYSTEM [Suspect]
     Active Substance: BUPRENORPHINE
     Indication: Crohn^s disease
     Dosage: OTHER QUANTITY : 4 PATCH(ES);?OTHER FREQUENCY : 1X WEEKLY;?
     Route: 062
     Dates: start: 20220701, end: 20220701
  2. BUPRENORPHINE TRANSDERMAL SYSTEM [Suspect]
     Active Substance: BUPRENORPHINE
     Indication: Pain
  3. ADDERALL [Concomitant]
     Active Substance: AMPHETAMINE ASPARTATE\AMPHETAMINE SULFATE\DEXTROAMPHETAMINE SACCHARATE\DEXTROAMPHETAMINE SULFATE
  4. KLONOPIN [Concomitant]
     Active Substance: CLONAZEPAM
  5. Bupronorphine transdermal [Concomitant]
  6. Ajovy [Concomitant]
  7. PHENOHYTRO [Concomitant]
  8. VENTOLIN [Concomitant]
     Active Substance: ALBUTEROL SULFATE
  9. FAMOTIDINE [Concomitant]
     Active Substance: FAMOTIDINE
  10. PANTOPRAZOLE SODIUM [Concomitant]
     Active Substance: PANTOPRAZOLE SODIUM
  11. CANNABIS SATIVA SUBSP. INDICA TOP [Concomitant]
     Active Substance: CANNABIS SATIVA SUBSP. INDICA TOP
  12. CIALIS [Concomitant]
     Active Substance: TADALAFIL
  13. ZOFRAN [Concomitant]
     Active Substance: ONDANSETRON HYDROCHLORIDE
  14. MECLIZINE [Concomitant]
     Active Substance: MECLIZINE HYDROCHLORIDE
  15. VITAMIN D2 [Concomitant]
     Active Substance: ERGOCALCIFEROL
  16. SYMPROIC [Concomitant]
     Active Substance: NALDEMEDINE
  17. VITAMIN D3 [Concomitant]
     Active Substance: CHOLECALCIFEROL
  18. TYLENOL [Concomitant]
     Active Substance: ACETAMINOPHEN
  19. NURTEC ODT [Concomitant]
     Active Substance: RIMEGEPANT SULFATE

REACTIONS (6)
  - Product substitution issue [None]
  - Nausea [None]
  - Palpitations [None]
  - Blood pressure increased [None]
  - Suspected product quality issue [None]
  - Disorientation [None]

NARRATIVE: CASE EVENT DATE: 20220701
